FAERS Safety Report 4899368-1 (Version None)
Quarter: 2006Q1

REPORT INFORMATION
  Report Type: 
  Country: None (occurrence: None)
  Receive Date: 20060131
  Receipt Date: 20060123
  Transmission Date: 20060701
  Serious: Yes (Life-Threatening)
  Sender: FDA-Public Use
  Company Number: 2006012698

PATIENT
  Age: 85 Year
  Sex: Female
  Weight: 65 kg

DRUGS (20)
  1. LYRICA [Suspect]
     Indication: NEURALGIA
     Dosage: 150 MG (75 MG, 2 IN 1 D), ORAL
     Route: 048
     Dates: start: 20051119, end: 20051125
  2. SPIRONOLACTONE [Concomitant]
  3. BISOPROLOL (BISOPROLOL) [Concomitant]
  4. TRAZODONE (TRAZODONE) [Concomitant]
  5. CHLORDIAZEPOXIDE [Concomitant]
  6. OMEPRAZOLE [Concomitant]
  7. WHITE SOFT PARAFFIN (WHITE SOFT PARAFFIN) [Concomitant]
  8. ISOTARD XL (ISOSORBIDE MONONITRATE) [Concomitant]
  9. GAVISCON ADVANCE (POTASSIUM BICARBONATE, SODIUM ALIGNATE) [Concomitant]
  10. BUMETANIDE [Concomitant]
  11. BACLOFEN [Concomitant]
  12. SENNA (SENNA) [Concomitant]
  13. LEVOTHYROXINE SODIUM [Concomitant]
  14. CO-CODAMOL (CODEINE PHOSPHATE, PARACETAMOL) [Concomitant]
  15. TRAMADOL (TRAMADOL) [Concomitant]
  16. MOVICOL (MACROGOL, POTASSIUM CHLORIDE, SODIUM BICARBONATE, SODIUM CHLO [Concomitant]
  17. ASPIRIN [Concomitant]
  18. CEPHALEXIN [Concomitant]
  19. PROCYCLIDINE HYDROCHLORIDE 2MG TAB [Concomitant]
  20. NEURONTIN [Concomitant]

REACTIONS (5)
  - CHEYNE-STOKES RESPIRATION [None]
  - DEPRESSED LEVEL OF CONSCIOUSNESS [None]
  - LOWER RESPIRATORY TRACT INFECTION [None]
  - RESPIRATORY DEPRESSION [None]
  - SOMNOLENCE [None]
